FAERS Safety Report 4350142-4 (Version None)
Quarter: 2004Q2

REPORT INFORMATION
  Report Type: 
  Country: None (occurrence: None)
  Receive Date: 20040429
  Receipt Date: 20040406
  Transmission Date: 20050107
  Serious: Yes (Other)
  Sender: FDA-Public Use
  Company Number: PHFR2004GB01689

PATIENT
  Age: 55 Year
  Sex: Female

DRUGS (1)
  1. ESTRACOMB TTS [Suspect]
     Indication: MENOPAUSAL SYMPTOMS
     Route: 062

REACTIONS (4)
  - DEAFNESS [None]
  - DEAFNESS UNILATERAL [None]
  - HYPERTENSION [None]
  - LIPIDS INCREASED [None]
